FAERS Safety Report 9807565 (Version 1)
Quarter: 2014Q1

REPORT INFORMATION
  Report Type: Spontaneous
  Country: US (occurrence: US)
  Receive Date: 20140110
  Receipt Date: 20140110
  Transmission Date: 20141002
  Serious: No
  Sender: FDA-Public Use
  Company Number: US-SANOFI-AVENTIS-2013SA037539

PATIENT
  Sex: Male

DRUGS (13)
  1. PLAVIX [Suspect]
     Route: 048
  2. ABILIFY [Concomitant]
  3. COREG [Concomitant]
  4. AMIODARONE [Concomitant]
  5. ECOTRIN [Concomitant]
  6. ATORVASTATIN [Concomitant]
  7. DIGOXIN [Concomitant]
  8. FUROSEMIDE [Concomitant]
  9. LOSARTAN [Concomitant]
  10. ZOLOFT [Concomitant]
  11. BUSPAR [Concomitant]
  12. SPIRONOLACTONE [Concomitant]
  13. FISH OIL [Concomitant]

REACTIONS (4)
  - Chills [Recovered/Resolved]
  - Hyperhidrosis [Recovered/Resolved]
  - Fear [Recovered/Resolved]
  - Thinking abnormal [Unknown]
